FAERS Safety Report 12627081 (Version 1)
Quarter: 2016Q3

REPORT INFORMATION
  Report Type: Spontaneous
  Country: JP (occurrence: JP)
  Receive Date: 20160805
  Receipt Date: 20160805
  Transmission Date: 20161109
  Serious: Yes (Other)
  Sender: FDA-Public Use
  Company Number: JP-PRINSTON PHARMACEUTICAL INC.-2016PRN00195

PATIENT
  Age: 53 Year
  Sex: Female

DRUGS (7)
  1. CLONAZEPAM. [Concomitant]
     Active Substance: CLONAZEPAM
     Dosage: 1.5 UNK, UNK
     Route: 065
  2. LEVODOPA [Suspect]
     Active Substance: LEVODOPA
     Dosage: 100 MG, UNK
     Route: 065
  3. LEVODOPA [Suspect]
     Active Substance: LEVODOPA
     Indication: DEMENTIA WITH LEWY BODIES
     Dosage: 600 MG, UNK
     Route: 065
  4. ROTIGOTINE [Suspect]
     Active Substance: ROTIGOTINE
     Indication: DEMENTIA WITH LEWY BODIES
     Route: 065
  5. ROPINIROLE. [Suspect]
     Active Substance: ROPINIROLE
     Indication: DEMENTIA WITH LEWY BODIES
     Dosage: 6 MG, UNK
     Route: 065
  6. BEPERIDEN [Concomitant]
     Dosage: 3 MG, UNK
     Route: 065
  7. OLANZAPINE. [Suspect]
     Active Substance: OLANZAPINE
     Indication: DEMENTIA WITH LEWY BODIES
     Route: 065

REACTIONS (5)
  - Apnoeic attack [Recovering/Resolving]
  - Dyspnoea [Recovering/Resolving]
  - Respiratory dyskinesia [Recovering/Resolving]
  - Oromandibular dystonia [Recovering/Resolving]
  - Drug interaction [Unknown]
